FAERS Safety Report 25397729 (Version 1)
Quarter: 2025Q2

REPORT INFORMATION
  Report Type: Spontaneous
  Country: JP (occurrence: JP)
  Receive Date: 20250604
  Receipt Date: 20250604
  Transmission Date: 20250716
  Serious: Yes (Hospitalization, Other)
  Sender: PFIZER
  Company Number: JP-PFIZER INC-PV202500065724

PATIENT
  Age: 77 Year
  Sex: Female
  Weight: 45.7 kg

DRUGS (3)
  1. PENICILLIN G BENZATHINE [Suspect]
     Active Substance: PENICILLIN G BENZATHINE
     Indication: Latent syphilis
     Route: 030
     Dates: start: 20250515, end: 20250515
  2. EPCLUSA [Concomitant]
     Active Substance: SOFOSBUVIR\VELPATASVIR
     Route: 048
  3. AMLODIPINE [Concomitant]
     Active Substance: AMLODIPINE BESYLATE
     Route: 048

REACTIONS (2)
  - Seizure [Recovered/Resolved]
  - Compression fracture [Unknown]

NARRATIVE: CASE EVENT DATE: 20250515
